FAERS Safety Report 7702072-5 (Version None)
Quarter: 2011Q3

REPORT INFORMATION
  Report Type: 
  Country: None (occurrence: None)
  Receive Date: 20110822
  Receipt Date: 20110811
  Transmission Date: 20111222
  Serious: Yes (Hospitalization, Other)
  Sender: FDA-Public Use
  Company Number: US-ASTRAZENECA-2011SE38873

PATIENT
  Age: 88 Year
  Sex: Male

DRUGS (10)
  1. SEROQUEL [Suspect]
     Indication: DEMENTIA ALZHEIMER'S TYPE
     Route: 048
     Dates: start: 20110213
  2. UNOXYTROL [Concomitant]
  3. FOLIC ACID [Concomitant]
  4. WARFARIN SODIUM [Concomitant]
  5. FUROSEMIDE [Concomitant]
  6. ALPRAZOLAM [Concomitant]
  7. NEXIUM [Suspect]
     Route: 048
  8. SELENIUM [Concomitant]
  9. FISH OIL [Concomitant]
  10. TRIAMPTERINE [Concomitant]

REACTIONS (9)
  - AGGRESSION [None]
  - OFF LABEL USE [None]
  - AGITATION [None]
  - PULMONARY EMBOLISM [None]
  - DEMENTIA ALZHEIMER'S TYPE [None]
  - ABDOMINAL DISCOMFORT [None]
  - OEDEMA PERIPHERAL [None]
  - PNEUMONIA [None]
  - DRUG DOSE OMISSION [None]
